FAERS Safety Report 7969338-5 (Version None)
Quarter: 2011Q4

REPORT INFORMATION
  Report Type: 
  Country: None (occurrence: None)
  Receive Date: 20111209
  Receipt Date: 20111202
  Transmission Date: 20120403
  Serious: Yes (Hospitalization, Other)
  Sender: FDA-Public Use
  Company Number: CA-ASTRAZENECA-2011SE73732

PATIENT
  Age: 817 Month
  Sex: Male

DRUGS (8)
  1. TARCEVA [Interacting]
     Route: 065
  2. ASPIRIN [Concomitant]
     Route: 048
  3. MOTILIUM [Concomitant]
     Route: 048
  4. CRESTOR [Suspect]
     Route: 048
  5. PREVACID [Concomitant]
     Route: 048
  6. IMOVANE [Concomitant]
     Route: 048
  7. NORVASC [Concomitant]
     Route: 048
  8. ZANTAC [Concomitant]
     Route: 048

REACTIONS (3)
  - HEPATITIS [None]
  - RHABDOMYOLYSIS [None]
  - DRUG INTERACTION [None]
